FAERS Safety Report 5194517-2 (Version None)
Quarter: 2006Q4

REPORT INFORMATION
  Report Type: 
  Country: None (occurrence: None)
  Receive Date: 20061222
  Receipt Date: 20061107
  Transmission Date: 20070319
  Serious: Yes (Death, Life-Threatening)
  Sender: FDA-Public Use
  Company Number: ENTC2006-0209

PATIENT
  Age: 63 Year
  Sex: Male

DRUGS (13)
  1. STALEVO 100 [Suspect]
     Indication: PARKINSON'S DISEASE
     Dosage: 600 MG ORAL
     Route: 048
     Dates: start: 20060117
  2. AMPICILINA [Concomitant]
  3. GENTAMICIN SULFATE [Concomitant]
  4. CIPROFLOXACON [Concomitant]
  5. ZINACEF [Concomitant]
  6. SULPERAZONE [Concomitant]
  7. ALGOCALMIN [Concomitant]
  8. ACETAMINOPHEN [Concomitant]
  9. ROPINIROLE HCL [Concomitant]
  10. JUMEX [Concomitant]
  11. FENATOIN [Concomitant]
  12. SPIRONOLACTONE [Concomitant]
  13. DIURETICS [Concomitant]

REACTIONS (7)
  - BLOOD POTASSIUM DECREASED [None]
  - BRONCHOPNEUMONIA [None]
  - HYPERNATRAEMIA [None]
  - INFECTION [None]
  - RESPIRATORY FAILURE [None]
  - RHABDOMYOLYSIS [None]
  - URINARY TRACT INFECTION PSEUDOMONAL [None]
